FAERS Safety Report 7409143-1 (Version None)
Quarter: 2011Q2

REPORT INFORMATION
  Report Type: 
  Country: None (occurrence: None)
  Receive Date: 20110412
  Receipt Date: 20110329
  Transmission Date: 20111010
  Serious: Yes (Death, Life-Threatening, Hospitalization)
  Sender: FDA-Public Use
  Company Number: FR-ROCHE-769099

PATIENT
  Sex: Male

DRUGS (7)
  1. FLUDARABINE [Suspect]
     Indication: BONE MARROW TRANSPLANT
     Dosage: DRUG REPORTED AS : FLUDARABINE EBEWE
     Route: 042
     Dates: start: 20101015, end: 20101017
  2. NEORAL [Suspect]
     Route: 048
     Dates: start: 20101018, end: 20101031
  3. ENDOXAN [Suspect]
     Route: 042
     Dates: start: 20101015, end: 20101017
  4. ZELITREX [Concomitant]
  5. CELLCEPT [Suspect]
     Route: 065
     Dates: start: 20101019, end: 20101116
  6. NEORAL [Suspect]
     Dosage: DRUG ALSO REPORTED AS : NEORAL AND SANDIMMUN
     Route: 048
     Dates: start: 20101101, end: 20101103
  7. BACTRIM [Concomitant]

REACTIONS (5)
  - PYRAMIDAL TRACT SYNDROME [None]
  - VISUAL IMPAIRMENT [None]
  - COMA [None]
  - ENCEPHALOPATHY [None]
  - BALANCE DISORDER [None]
